FAERS Safety Report 14121575 (Version 1)
Quarter: 2017Q4

REPORT INFORMATION
  Report Type: Spontaneous
  Country: US (occurrence: US)
  Receive Date: 20171024
  Receipt Date: 20171024
  Transmission Date: 20180321
  Serious: No
  Sender: FDA-Public Use
  Company Number: US-MYLANLABS-2017M1062446

PATIENT
  Age: 71 Year
  Sex: Female

DRUGS (1)
  1. LIDOCAINE PATCH [Suspect]
     Active Substance: LIDOCAINE
     Indication: PAIN
     Dosage: 1 DF, QD (12 HOURS ON AND 12 HOURS OFF)
     Route: 003
     Dates: start: 201709

REACTIONS (4)
  - Product quality issue [Unknown]
  - Application site exfoliation [Recovered/Resolved]
  - Product adhesion issue [Unknown]
  - Application site irritation [None]

NARRATIVE: CASE EVENT DATE: 201709
